FAERS Safety Report 13050344 (Version 1)
Quarter: 2016Q4

REPORT INFORMATION
  Report Type: Spontaneous
  Country: US (occurrence: US)
  Receive Date: 20161221
  Receipt Date: 20161221
  Transmission Date: 20170207
  Serious: No
  Sender: FDA-Public Use
  Company Number: US-NOVOPROD-496440

PATIENT
  Age: 29 Year
  Sex: Male

DRUGS (1)
  1. LEVEMIR [Suspect]
     Active Substance: INSULIN DETEMIR
     Indication: PRODUCT USED FOR UNKNOWN INDICATION
     Route: 058

REACTIONS (8)
  - Hypertension [Unknown]
  - Influenza [Unknown]
  - Anxiety [Unknown]
  - Insomnia [Unknown]
  - Blood cholesterol increased [Unknown]
  - Sciatica [Unknown]
  - Blood glucose increased [Unknown]
  - Sinus disorder [Unknown]
